FAERS Safety Report 8923254 (Version 1)
Quarter: 2012Q4

REPORT INFORMATION
  Report Type: Spontaneous
  Country: JP (occurrence: None)
  Receive Date: 20121115
  Receipt Date: 20121115
  Transmission Date: 20130627
  Serious: Yes (Other)
  Sender: FDA-Public Use
  Company Number: 2012-003961

PATIENT
  Age: 86 Year
  Sex: Female

DRUGS (2)
  1. RISEDRONATE [Suspect]
     Indication: OSTEOPOROSIS
     Route: 048
  2. MENATETRENONE [Concomitant]

REACTIONS (2)
  - Atypical femur fracture [None]
  - Fall [None]
